FAERS Safety Report 8301221-8 (Version None)
Quarter: 2012Q2

REPORT INFORMATION
  Report Type: 
  Country: None (occurrence: None)
  Receive Date: 20120420
  Receipt Date: 20120420
  Transmission Date: 20120825
  Serious: Yes (Hospitalization)
  Sender: FDA-Public Use
  Company Number: None

PATIENT
  Age: 30 Year
  Sex: Female
  Weight: 54.431 kg

DRUGS (1)
  1. SUBOXONE [Suspect]

REACTIONS (7)
  - PERICARDIAL EFFUSION [None]
  - PAIN [None]
  - RASH GENERALISED [None]
  - SPLENITIS [None]
  - PRURITUS [None]
  - GASTRIC DILATATION [None]
  - LIVER INJURY [None]
